FAERS Safety Report 19470441 (Version 1)
Quarter: 2021Q2

REPORT INFORMATION
  Report Type: Spontaneous
  Country: US (occurrence: US)
  Receive Date: 20210628
  Receipt Date: 20210628
  Transmission Date: 20210717
  Serious: No
  Sender: FDA-Public Use
  Company Number: US-HORIZON-2020HZN01438

PATIENT
  Sex: Female

DRUGS (2)
  1. DUEXIS [Suspect]
     Active Substance: FAMOTIDINE\IBUPROFEN
     Indication: NERVE COMPRESSION
     Dosage: ONE TABLET A DAY (ON OCCASION PATIENT TAKES TWO TABLETS DUE TO WAKING UP IN THE MIDDLE OF THE NIGHT
  2. DUEXIS [Suspect]
     Active Substance: FAMOTIDINE\IBUPROFEN
     Indication: BACK PAIN

REACTIONS (1)
  - Off label use [Unknown]
